FAERS Safety Report 7476481-6 (Version None)
Quarter: 2011Q2

REPORT INFORMATION
  Report Type: 
  Country: None (occurrence: None)
  Receive Date: 20110510
  Receipt Date: 20110510
  Transmission Date: 20111010
  Serious: Yes (Hospitalization)
  Sender: FDA-Public Use
  Company Number: None

PATIENT
  Age: 70 Year
  Sex: Male
  Weight: 64 kg

DRUGS (1)
  1. SULFAMETHOXAZOLE TRIMETHOPRIM [Suspect]
     Indication: URINARY TRACT INFECTION
     Dosage: 160 MG BID PO
     Route: 048
     Dates: start: 20101128, end: 20110503

REACTIONS (3)
  - RENAL FAILURE ACUTE [None]
  - NAUSEA [None]
  - ABDOMINAL PAIN [None]
